FAERS Safety Report 13554953 (Version 6)
Quarter: 2017Q3

REPORT INFORMATION
  Report Type: Spontaneous
  Country: KR (occurrence: KR)
  Receive Date: 20170517
  Receipt Date: 20170913
  Transmission Date: 20171127
  Serious: Yes (Hospitalization)
  Sender: FDA-Public Use
  Company Number: KR-009507513-1705KOR007390

PATIENT
  Age: 65 Year
  Sex: Male
  Weight: 69.4 kg

DRUGS (67)
  1. EMEND (FOSAPREPITANT DIMEGLUMINE) [Suspect]
     Active Substance: FOSAPREPITANT DIMEGLUMINE
     Indication: PROPHYLAXIS OF NAUSEA AND VOMITING
     Dosage: 150 MG, ONCE
     Route: 042
     Dates: start: 20161212, end: 20161212
  2. EMEND (FOSAPREPITANT DIMEGLUMINE) [Suspect]
     Active Substance: FOSAPREPITANT DIMEGLUMINE
     Dosage: 150 MG, ONCE
     Route: 042
     Dates: start: 20170211, end: 20170211
  3. EPS [Concomitant]
     Dosage: 184 MG, QD, CYCLE 2
     Route: 042
     Dates: start: 20170120, end: 20170120
  4. EPS [Concomitant]
     Dosage: 177 MG, QD, CYCLE 3
     Route: 042
     Dates: start: 20170211, end: 20170213
  5. EPS [Concomitant]
     Dosage: 177 MG, QD, CYCLE 4
     Route: 042
     Dates: start: 20170318, end: 20170320
  6. CISPLATIN. [Concomitant]
     Active Substance: CISPLATIN
     Dosage: 86.4 MG, ONCE, CYCLE 5
     Route: 042
     Dates: start: 20170415, end: 20170415
  7. DEXAMETHASONE. [Concomitant]
     Active Substance: DEXAMETHASONE
     Dosage: 12 MG, ONCE
     Route: 048
     Dates: start: 20170120, end: 20170120
  8. DEXAMETHASONE. [Concomitant]
     Active Substance: DEXAMETHASONE
     Dosage: 8 MG, QD
     Route: 048
     Dates: start: 20170212, end: 20170213
  9. DEXAMETHASONE. [Concomitant]
     Active Substance: DEXAMETHASONE
     Dosage: 12 MG, ONCE
     Route: 048
     Dates: start: 20170318, end: 20170318
  10. DEXAMETHASONE. [Concomitant]
     Active Substance: DEXAMETHASONE
     Dosage: 8 MG, ONCE
     Route: 048
     Dates: start: 20170319, end: 20170319
  11. PALONOSETRON HYDROCHLORIDE. [Concomitant]
     Active Substance: PALONOSETRON HYDROCHLORIDE
     Indication: PREMEDICATION
     Dosage: 0.25 MG, ONCE
     Route: 042
     Dates: start: 20161212, end: 20161212
  12. FAMOTIDINE. [Concomitant]
     Active Substance: FAMOTIDINE
     Dosage: 20 MG, BID
     Route: 042
     Dates: start: 20170318, end: 20170320
  13. MAGNESIUM SULFATE. [Concomitant]
     Active Substance: MAGNESIUM SULFATE
     Dosage: 1 G, BID
     Route: 042
     Dates: start: 20170211, end: 20170211
  14. DEXAMETHASONE. [Concomitant]
     Active Substance: DEXAMETHASONE
     Dosage: 8 MG, ONCE
     Route: 048
     Dates: start: 20170121, end: 20170121
  15. PALONOSETRON HYDROCHLORIDE. [Concomitant]
     Active Substance: PALONOSETRON HYDROCHLORIDE
     Dosage: 0.25 MG, ONCE
     Route: 042
     Dates: start: 20170120, end: 20170120
  16. FAMOTIDINE. [Concomitant]
     Active Substance: FAMOTIDINE
     Dosage: 20 MG, BID
     Route: 042
     Dates: start: 20170418, end: 20170418
  17. MAGNESIUM SULFATE. [Concomitant]
     Active Substance: MAGNESIUM SULFATE
     Indication: MINERAL SUPPLEMENTATION
     Dosage: 1 G, BID
     Route: 042
     Dates: start: 20161212, end: 20161212
  18. FUROSEMIDE. [Concomitant]
     Active Substance: FUROSEMIDE
     Dosage: 20 MG, BID
     Route: 042
     Dates: start: 20170415, end: 20170415
  19. CISPLATIN. [Concomitant]
     Active Substance: CISPLATIN
     Dosage: 110.4 MG ONCE, CYCLE 2
     Route: 042
     Dates: start: 20170120, end: 20170120
  20. CISPLATIN. [Concomitant]
     Active Substance: CISPLATIN
     Dosage: 106 MG, ONCE, CYCLE 3
     Route: 042
     Dates: start: 20170211, end: 20170211
  21. AD MYCIN VIAL [Concomitant]
     Indication: GASTRIC CANCER
     Dosage: 20 MG, ONCE
     Route: 042
     Dates: start: 20161208, end: 20161208
  22. DEXAMETHASONE. [Concomitant]
     Active Substance: DEXAMETHASONE
     Dosage: 8 MG, ONCE
     Route: 048
     Dates: start: 20170416, end: 20170416
  23. PALONOSETRON HYDROCHLORIDE. [Concomitant]
     Active Substance: PALONOSETRON HYDROCHLORIDE
     Dosage: 0.25 MG, ONCE
     Route: 042
     Dates: start: 20170211, end: 20170211
  24. MAGNESIUM SULFATE. [Concomitant]
     Active Substance: MAGNESIUM SULFATE
     Dosage: 1 G, BID
     Route: 042
     Dates: start: 20170318, end: 20170318
  25. ENTELON [Concomitant]
     Indication: PROPHYLAXIS
     Dosage: 150 MG, QD
     Route: 048
     Dates: start: 20161208, end: 20161225
  26. EPS [Concomitant]
     Indication: GASTRIC CANCER
     Dosage: 184 MG, QD, CYCLE 1; STRENGTH: 150MG/7.5ML
     Route: 042
     Dates: start: 20161212, end: 20161214
  27. EPS [Concomitant]
     Dosage: 144 MG, QD, CYCLE 5
     Route: 042
     Dates: start: 20170415, end: 20170417
  28. DEXAMETHASONE. [Concomitant]
     Active Substance: DEXAMETHASONE
     Dosage: 8 MG, BID
     Route: 048
     Dates: start: 20170122, end: 20170123
  29. DEXAMETHASONE. [Concomitant]
     Active Substance: DEXAMETHASONE
     Dosage: 8 MG, BID
     Route: 048
     Dates: start: 20170214, end: 20170214
  30. AMMONIUM LACTATE. [Concomitant]
     Active Substance: AMMONIUM LACTATE
     Indication: DRY SKIN
     Dosage: G, BID
     Route: 062
     Dates: start: 20161207, end: 20161225
  31. DUROGESIC [Concomitant]
     Active Substance: FENTANYL
     Indication: THERAPEUTIC EMBOLISATION
     Dosage: 12 MICROGRAM, CONCENTRATION: Q72HR
     Route: 062
     Dates: start: 20161208, end: 20161210
  32. FAMOTIDINE. [Concomitant]
     Active Substance: FAMOTIDINE
     Dosage: 20 MG, BID
     Route: 042
     Dates: start: 20170120, end: 20170123
  33. FAMOTIDINE. [Concomitant]
     Active Substance: FAMOTIDINE
     Dosage: 20 MG, BID
     Route: 042
     Dates: start: 20170211, end: 20170213
  34. POTASSIUM CHLORIDE. [Concomitant]
     Active Substance: POTASSIUM CHLORIDE
     Dosage: 20 MEQ, BID
     Route: 042
     Dates: start: 20170415, end: 20170415
  35. MAGNESIUM SULFATE. [Concomitant]
     Active Substance: MAGNESIUM SULFATE
     Dosage: 1 G, BID
     Route: 042
     Dates: start: 20170120, end: 20170120
  36. ADRIAMYCIN [Concomitant]
     Active Substance: DOXORUBICIN HYDROCHLORIDE
     Indication: GASTRIC CANCER
     Dosage: 30 MG, ONCE
     Route: 013
     Dates: start: 20161208, end: 20161208
  37. DEXAMETHASONE. [Concomitant]
     Active Substance: DEXAMETHASONE
     Indication: PREMEDICATION
     Dosage: 12 MG, ONCE
     Route: 048
     Dates: start: 20161212, end: 20161212
  38. DEXAMETHASONE. [Concomitant]
     Active Substance: DEXAMETHASONE
     Dosage: 8 MG, QD
     Route: 048
     Dates: start: 20161213, end: 20161215
  39. DEXAMETHASONE. [Concomitant]
     Active Substance: DEXAMETHASONE
     Dosage: 8 MG, BID
     Route: 048
     Dates: start: 20170320, end: 20170321
  40. DEXAMETHASONE. [Concomitant]
     Active Substance: DEXAMETHASONE
     Dosage: 12 MG, ONCE
     Route: 048
     Dates: start: 20170415, end: 20170415
  41. PALONOSETRON HYDROCHLORIDE. [Concomitant]
     Active Substance: PALONOSETRON HYDROCHLORIDE
     Dosage: 0.25 MG, ONCE
     Route: 042
     Dates: start: 20170318, end: 20170318
  42. ZEMIGLO [Concomitant]
     Indication: DIABETES MELLITUS
     Dosage: 50 MG, QD
     Route: 048
     Dates: start: 201610, end: 20170304
  43. GLUPA [Concomitant]
     Active Substance: METFORMIN HYDROCHLORIDE
     Indication: DIABETES MELLITUS
     Dosage: 250 MG, BID
     Route: 048
     Dates: start: 20161207, end: 20170209
  44. ALOXI [Concomitant]
     Active Substance: PALONOSETRON HYDROCHLORIDE
     Indication: THERAPEUTIC EMBOLISATION
     Dosage: 0.25 MG, ONCE
     Route: 042
     Dates: start: 20161208, end: 20161208
  45. FUROSEMIDE. [Concomitant]
     Active Substance: FUROSEMIDE
     Indication: PROPHYLAXIS
     Dosage: 20 MG, BID
     Route: 042
     Dates: start: 20161212, end: 20161212
  46. FUROSEMIDE. [Concomitant]
     Active Substance: FUROSEMIDE
     Dosage: 20 MG, BID
     Route: 042
     Dates: start: 20170120, end: 20170120
  47. EMEND (FOSAPREPITANT DIMEGLUMINE) [Suspect]
     Active Substance: FOSAPREPITANT DIMEGLUMINE
     Dosage: 150 MG, ONCE
     Route: 042
     Dates: start: 20170318, end: 20170318
  48. EMEND (FOSAPREPITANT DIMEGLUMINE) [Suspect]
     Active Substance: FOSAPREPITANT DIMEGLUMINE
     Dosage: 150 MG, ONCE
     Route: 042
     Dates: start: 20170415, end: 20170415
  49. DEXAMETHASONE. [Concomitant]
     Active Substance: DEXAMETHASONE
     Dosage: 12 MG, ONCE
     Route: 048
     Dates: start: 20170211, end: 20170211
  50. PETHIDINE HCL FRESENIUS [Concomitant]
     Indication: THERAPEUTIC EMBOLISATION
     Dosage: 25 MG, ONCE
     Route: 042
     Dates: start: 20161208, end: 20161208
  51. FAMOTIDINE. [Concomitant]
     Active Substance: FAMOTIDINE
     Indication: PROPHYLAXIS
     Dosage: 20 MG, QD
     Route: 042
     Dates: start: 20161212, end: 20161213
  52. FAMOTIDINE. [Concomitant]
     Active Substance: FAMOTIDINE
     Dosage: 20 MG, BID
     Route: 042
     Dates: start: 20170415, end: 20170417
  53. MAGNESIUM SULFATE. [Concomitant]
     Active Substance: MAGNESIUM SULFATE
     Dosage: 1 G, BID
     Route: 042
     Dates: start: 20170415, end: 20170415
  54. FUROSEMIDE. [Concomitant]
     Active Substance: FUROSEMIDE
     Dosage: 20 MG, BID
     Route: 042
     Dates: start: 20170318, end: 20170318
  55. BENZYDAMINE HYDROCHLORIDE [Concomitant]
     Active Substance: BENZYDAMINE HYDROCHLORIDE
     Indication: PROPHYLAXIS
     Dosage: 15 ML, QD; ROUTE: GARGLE
     Route: 050
     Dates: start: 20161214, end: 20161221
  56. EMEND (FOSAPREPITANT DIMEGLUMINE) [Suspect]
     Active Substance: FOSAPREPITANT DIMEGLUMINE
     Dosage: 150 MG, ONCE
     Route: 042
     Dates: start: 20170120, end: 20170120
  57. DEXAMETHASONE. [Concomitant]
     Active Substance: DEXAMETHASONE
     Dosage: 8 MG, BID
     Route: 048
     Dates: start: 20170417, end: 20170417
  58. POTASSIUM CHLORIDE. [Concomitant]
     Active Substance: POTASSIUM CHLORIDE
     Indication: MINERAL SUPPLEMENTATION
     Dosage: 20 MEQ, BID
     Route: 042
     Dates: start: 20161212, end: 20161212
  59. POTASSIUM CHLORIDE. [Concomitant]
     Active Substance: POTASSIUM CHLORIDE
     Dosage: 20 MEQ, BID
     Route: 042
     Dates: start: 20170211, end: 20170211
  60. FUROSEMIDE. [Concomitant]
     Active Substance: FUROSEMIDE
     Dosage: 20 MG, BID
     Route: 042
     Dates: start: 20170211, end: 20170211
  61. RANITIDINE. [Concomitant]
     Active Substance: RANITIDINE
     Indication: PROPHYLAXIS AGAINST GASTROINTESTINAL ULCER
     Dosage: 150 MG, BID
     Route: 048
     Dates: start: 20161212, end: 20161225
  62. CISPLATIN. [Concomitant]
     Active Substance: CISPLATIN
     Indication: GASTRIC CANCER
     Dosage: 110.4 MG ONCE, CYCLE 1; STRENGTH: 50MG/100ML
     Route: 042
     Dates: start: 20161212, end: 20161212
  63. CISPLATIN. [Concomitant]
     Active Substance: CISPLATIN
     Dosage: 106.2 MG, ONCE, CYCLE 4
     Route: 042
     Dates: start: 20170318, end: 20170318
  64. PALONOSETRON HYDROCHLORIDE. [Concomitant]
     Active Substance: PALONOSETRON HYDROCHLORIDE
     Indication: PROPHYLAXIS OF NAUSEA AND VOMITING
     Dosage: 0.25 MG, ONCE
     Route: 042
     Dates: start: 20161208, end: 20161208
  65. PALONOSETRON HYDROCHLORIDE. [Concomitant]
     Active Substance: PALONOSETRON HYDROCHLORIDE
     Dosage: 0.25 MG, ONCE
     Route: 042
     Dates: start: 20170415, end: 20170415
  66. POTASSIUM CHLORIDE. [Concomitant]
     Active Substance: POTASSIUM CHLORIDE
     Dosage: 20 MEQ, BID
     Route: 042
     Dates: start: 20170120, end: 20170120
  67. POTASSIUM CHLORIDE. [Concomitant]
     Active Substance: POTASSIUM CHLORIDE
     Dosage: 20 MEQ, BID
     Route: 042
     Dates: start: 20170318, end: 20170318

REACTIONS (9)
  - Pyrexia [Recovered/Resolved]
  - Diarrhoea [Recovered/Resolved]
  - Neutrophil count decreased [Recovered/Resolved]
  - Neutrophil count decreased [Recovered/Resolved]
  - Neutrophil count decreased [Recovered/Resolved]
  - Neutrophil count decreased [Recovered/Resolved]
  - Pyrexia [Recovered/Resolved]
  - Weight decreased [Recovering/Resolving]
  - Pyrexia [Recovered/Resolved]

NARRATIVE: CASE EVENT DATE: 20161222
